FAERS Safety Report 16349416 (Version 1)
Quarter: 2019Q2

REPORT INFORMATION
  Report Type: Report from Study
  Country: BE (occurrence: BE)
  Receive Date: 20190523
  Receipt Date: 20190523
  Transmission Date: 20190711
  Serious: Yes (Death, Hospitalization, Other)
  Sender: FDA-Public Use
  Company Number: BE-PFIZER INC-2019213170

PATIENT
  Sex: Male
  Weight: 52.5 kg

DRUGS (26)
  1. OXIGEN [CITICOLINE] [Concomitant]
     Indication: CHRONIC OBSTRUCTIVE PULMONARY DISEASE
     Dosage: 2 L, UNK (2 MG, DAILY)
     Route: 055
     Dates: start: 20170620, end: 20180711
  2. SPIRIVA [Concomitant]
     Active Substance: TIOTROPIUM BROMIDE MONOHYDRATE
     Indication: CHRONIC OBSTRUCTIVE PULMONARY DISEASE
     Dosage: 1 DF, UNK (1 DF = 2 INHALATION)
     Route: 055
     Dates: start: 20090709
  3. DAFALGAN [Concomitant]
     Active Substance: ACETAMINOPHEN
     Indication: PAIN PROPHYLAXIS
     Dosage: 1 G, AS NEEDED
     Route: 048
     Dates: start: 20180711
  4. TEMESTA [LORAZEPAM] [Concomitant]
     Active Substance: LORAZEPAM
     Indication: INSOMNIA
     Dosage: 1 MG, DAILY
     Route: 048
     Dates: start: 20180713
  5. DUOVENT [Concomitant]
     Active Substance: FENOTEROL HYDROBROMIDE
     Indication: CHRONIC OBSTRUCTIVE PULMONARY DISEASE
     Dosage: 0.5 MG, AS NEEDED
     Route: 055
     Dates: start: 20140404
  6. BISOPROLOL [Concomitant]
     Active Substance: BISOPROLOL
     Indication: HYPERTENSION
     Dosage: 2.5 MG, DAILY
     Route: 048
     Dates: start: 1973, end: 20180711
  7. MORFINE [Concomitant]
     Active Substance: MORPHINE
     Indication: PAIN PROPHYLAXIS
     Dosage: 10 MG, 3X/DAY
     Route: 058
     Dates: start: 20180714
  8. TAZOCIN [Suspect]
     Active Substance: PIPERACILLIN SODIUM\TAZOBACTAM SODIUM
     Indication: DYSPNOEA
     Dosage: 4 G, 3X/DAY
     Route: 042
     Dates: start: 20180715
  9. NIVOLUMAB [Suspect]
     Active Substance: NIVOLUMAB
     Indication: LUNG NEOPLASM MALIGNANT
     Dosage: 1 DF, EVERY 2 WEEKS (DOSE 1 DF = 185.4 (UNITS UNSPECIFIED) 1 DF = 156.6 (UNITS  UNSPECIFIED))
     Dates: start: 20180530, end: 20180711
  10. TRADONAL [Concomitant]
     Active Substance: TRAMADOL HYDROCHLORIDE
     Indication: PAIN PROPHYLAXIS
     Dosage: 50 MG, AS NEEDED
     Route: 048
     Dates: start: 20180711
  11. NIVOLUMAB [Suspect]
     Active Substance: NIVOLUMAB
     Dosage: 1 DF, EVERY TWO WEEKS
     Dates: start: 20180502, end: 20180516
  12. PIPERACILLINE [PIPERACILLIN] [Concomitant]
     Active Substance: PIPERACILLIN
     Indication: INFLAMMATION
     Dosage: 4 G, 3X/DAY
     Route: 042
     Dates: start: 20180715
  13. L-THYROXINE [LEVOTHYROXINE] [Concomitant]
     Active Substance: LEVOTHYROXINE
     Indication: THYROID DISORDER
     Dosage: 67.5 MG, DAILY (THYROIDECTOMY)
     Route: 048
     Dates: start: 2004
  14. COMBIVENT [Concomitant]
     Active Substance: ALBUTEROL SULFATE\IPRATROPIUM BROMIDE
     Dosage: 2.5 ML, QID
     Route: 055
     Dates: start: 20180711
  15. ZOFRA [Concomitant]
     Active Substance: ONDANSETRON HYDROCHLORIDE
     Indication: PROPHYLAXIS
     Dosage: 8 MG, DAILY
     Route: 048
     Dates: start: 20180713
  16. XANAX [Concomitant]
     Active Substance: ALPRAZOLAM
     Indication: PROPHYLAXIS
     Dosage: 0.25 MG, DAILY
     Route: 048
     Dates: start: 20180713
  17. SIMVASTATINE [Concomitant]
     Active Substance: SIMVASTATIN
     Indication: HYPERCHOLESTEROLAEMIA
     Dosage: 20 MG, DAILY
     Route: 048
     Dates: start: 2010
  18. LASIX [Concomitant]
     Active Substance: FUROSEMIDE
     Indication: DYSPNOEA
     Dosage: 40 MG, 2X/DAY
     Route: 042
     Dates: start: 20180717
  19. TAZOBAX [Concomitant]
     Indication: INFLAMMATION
     Dosage: 500 MG, TID
     Route: 042
     Dates: start: 20180715
  20. CLINDAMYCINE [CLINDAMYCIN] [Concomitant]
     Active Substance: CLINDAMYCIN
     Indication: INFLAMMATION
     Dosage: 600 MG, 3X/DAY
     Route: 048
     Dates: start: 20180713, end: 20180716
  21. RELVAR [Concomitant]
     Active Substance: FLUTICASONE FUROATE\VILANTEROL TRIFENATATE
     Indication: CHRONIC OBSTRUCTIVE PULMONARY DISEASE
     Dosage: 99.22 UG, DAILY
     Route: 055
     Dates: start: 20150318
  22. ASAFLOW [Concomitant]
     Active Substance: ASPIRIN
     Indication: PROPHYLAXIS
     Dosage: 80 MG, DAILY
     Route: 048
     Dates: start: 2009, end: 20180711
  23. SOLU-MEDROL [Concomitant]
     Active Substance: METHYLPREDNISOLONE SODIUM SUCCINATE
     Indication: ADJUVANT THERAPY
     Dosage: 40 MG, DAILY
     Route: 042
     Dates: start: 20180715
  24. EXACYL [Concomitant]
     Active Substance: TRANEXAMIC ACID
     Indication: TUMOUR HAEMORRHAGE
     Dosage: 500 MG, DAILY
     Route: 042
     Dates: start: 20180714, end: 20180714
  25. BACTROBAN [Concomitant]
     Active Substance: MUPIROCIN\MUPIROCIN CALCIUM
     Indication: STAPHYLOCOCCAL INFECTION
     Dosage: 3 G, 2X/DAY
     Route: 062
     Dates: start: 20180713
  26. LOORTAN [Concomitant]
     Active Substance: LOSARTAN POTASSIUM
     Indication: HYPERTENSION
     Dosage: 25 MG, DAILY
     Route: 048
     Dates: start: 1973, end: 20180711

REACTIONS (2)
  - Malignant neoplasm progression [Fatal]
  - Nephritis [Not Recovered/Not Resolved]

NARRATIVE: CASE EVENT DATE: 20180717
